FAERS Safety Report 5072421-8 (Version None)
Quarter: 2006Q3

REPORT INFORMATION
  Report Type: 
  Country: None (occurrence: None)
  Receive Date: 20060801
  Receipt Date: 20060717
  Transmission Date: 20061208
  Serious: Yes (Other)
  Sender: FDA-Public Use
  Company Number: US200607003059

PATIENT
  Sex: Female

DRUGS (3)
  1. HUMALOG PEN [Suspect]
     Indication: DIABETES MELLITUS
     Dates: start: 20050101
  2. HUMALOG [Suspect]
     Indication: DIABETES MELLITUS
  3. LANTUS [Concomitant]

REACTIONS (5)
  - INJECTION SITE IRRITATION [None]
  - MOVEMENT DISORDER [None]
  - PARKINSON'S DISEASE [None]
  - PHARMACEUTICAL PRODUCT COMPLAINT [None]
  - WRONG TECHNIQUE IN DRUG USAGE PROCESS [None]
